FAERS Safety Report 4721916-2 (Version None)
Quarter: 2005Q3

REPORT INFORMATION
  Report Type: 
  Country: None (occurrence: None)
  Receive Date: 20050722
  Receipt Date: 20050610
  Transmission Date: 20060218
  Serious: Yes (Other)
  Sender: FDA-Public Use
  Company Number: PHBS2005DE08799

PATIENT
  Age: 73 Year
  Sex: Male

DRUGS (6)
  1. AREDIA [Suspect]
     Indication: PLASMACYTOMA
     Route: 042
     Dates: start: 19971201
  2. ZOMETA [Suspect]
     Indication: PLASMACYTOMA
     Route: 042
     Dates: start: 20020401
  3. VINCRISTINE [Concomitant]
     Dosage: 1 MG/DAY ON DAY 1
     Route: 042
  4. CYCLOPHOSPHAMIDE [Concomitant]
     Dosage: 100 MG/M2 ON DAY 1-4
     Route: 048
  5. DOXORUBICIN [Concomitant]
     Dosage: 25 MG/M2 ON DAY 1
     Route: 042
  6. PREDNISONE [Concomitant]
     Dosage: 60 MG/M2 ON DAY 1-4
     Route: 048

REACTIONS (8)
  - ASEPTIC NECROSIS BONE [None]
  - BONE DEBRIDEMENT [None]
  - BONE DISORDER [None]
  - CANDIDIASIS [None]
  - IMPAIRED HEALING [None]
  - OSTEOMYELITIS [None]
  - PLASTIC SURGERY [None]
  - TOOTH EXTRACTION [None]
